FAERS Safety Report 20661364 (Version 1)
Quarter: 2022Q2

REPORT INFORMATION
  Report Type: Spontaneous
  Country: US (occurrence: US)
  Receive Date: 20220401
  Receipt Date: 20220401
  Transmission Date: 20220720
  Serious: Yes (Hospitalization)
  Sender: FDA-Public Use
  Company Number: US-JNJFOC-20220353377

PATIENT
  Age: 8 Decade
  Sex: Female

DRUGS (4)
  1. TYLENOL [Suspect]
     Active Substance: ACETAMINOPHEN
     Indication: Headache
     Route: 065
  2. AVACOPAN [Suspect]
     Active Substance: AVACOPAN
     Indication: Granulomatosis with polyangiitis
     Route: 048
     Dates: end: 20220109
  3. AVACOPAN [Suspect]
     Active Substance: AVACOPAN
     Route: 048
     Dates: start: 202201, end: 202201
  4. AVACOPAN [Suspect]
     Active Substance: AVACOPAN
     Route: 048
     Dates: start: 20220211

REACTIONS (1)
  - Cardiac fibrillation [Unknown]

NARRATIVE: CASE EVENT DATE: 20220101
